FAERS Safety Report 4445997-9 (Version None)
Quarter: 2004Q3

REPORT INFORMATION
  Report Type: 
  Country: None (occurrence: None)
  Receive Date: 20040907
  Receipt Date: 20040826
  Transmission Date: 20050211
  Serious: Yes (Hospitalization)
  Sender: FDA-Public Use
  Company Number: 208694

PATIENT
  Age: 50 Year
  Sex: Male

DRUGS (15)
  1. AVASTIN [Suspect]
     Indication: COLORECTAL CANCER METASTATIC
     Dosage: 5 MG/KG, Q2W, INTRAVENOUS
     Route: 042
     Dates: start: 20040527, end: 20040818
  2. COMBIVENT (IPRATROPIUM BROMIDE, ALBUTEROL SULFATE, ALBUTEROL) [Concomitant]
  3. IRON (SULFATE) (FEROUS SULFATE) [Concomitant]
  4. FLUOROURACIL [Concomitant]
  5. CPT-II (IRINOTECAN HYDROCHLORIDE) [Concomitant]
  6. LEUCOVORIN CALCIUM [Concomitant]
  7. ALDACTONE [Concomitant]
  8. VICODIN (HYDROCODONE BITARTRATE, ACETAMINOPHEN) [Concomitant]
  9. NEXIUM [Concomitant]
  10. CELEBREX [Concomitant]
  11. ADVIL [Concomitant]
  12. ATENOLOL [Concomitant]
  13. AMBIEN [Concomitant]
  14. ULTRACET (TRAMADOL HYDROCHLORIDE, ACETAMINOPHEN) [Concomitant]
  15. DURAGESIC [Concomitant]

REACTIONS (5)
  - LUNG CONSOLIDATION [None]
  - PLEURAL EFFUSION [None]
  - PULMONARY EMBOLISM [None]
  - PULMONARY INFARCTION [None]
  - PULMONARY NECROSIS [None]
